FAERS Safety Report 23974871 (Version 1)
Quarter: 2024Q2

REPORT INFORMATION
  Report Type: Spontaneous
  Country: GB (occurrence: GB)
  Receive Date: 20240614
  Receipt Date: 20240614
  Transmission Date: 20240716
  Serious: Yes (Other)
  Sender: FDA-Public Use
  Company Number: None

PATIENT
  Age: 56 Year
  Sex: Female
  Weight: 63 kg

DRUGS (2)
  1. AMLODIPINE [Suspect]
     Active Substance: AMLODIPINE BESYLATE
     Indication: Hypertension
     Dosage: 10MG DAILY
     Dates: start: 20240416, end: 20240520
  2. AMLODIPINE [Suspect]
     Active Substance: AMLODIPINE BESYLATE
     Dosage: AFTER COMMENCEMENT WITH AMLODIPINE 10MG AND CONTINUED WITH DOSE REDUCTION TO 5MG.

REACTIONS (2)
  - Joint swelling [Recovered/Resolved]
  - Gingival swelling [Recovered/Resolved]

NARRATIVE: CASE EVENT DATE: 20240429
